FAERS Safety Report 10648389 (Version 2)
Quarter: 2014Q4

REPORT INFORMATION
  Report Type: Report from Study
  Country: BR (occurrence: BR)
  Receive Date: 20141212
  Receipt Date: 20141223
  Transmission Date: 20150529
  Serious: Yes (Death)
  Sender: FDA-Public Use
  Company Number: PHHY2014BR161208

PATIENT
  Sex: Female
  Weight: 100 kg

DRUGS (4)
  1. EXELON PATCH [Suspect]
     Active Substance: RIVASTIGMINE
     Indication: DEMENTIA ALZHEIMER^S TYPE
     Dosage: (27 MG/ 15CM) OT, QD
     Route: 062
  2. EXELON [Suspect]
     Active Substance: RIVASTIGMINE TARTRATE
     Indication: DEMENTIA ALZHEIMER^S TYPE
     Dosage: UNK OT, QD
     Route: 065
  3. DIOVAN [Suspect]
     Active Substance: VALSARTAN
     Indication: HYPERTENSION
     Dosage: UNK OT, QD
     Route: 065
  4. DIOCOMB SI [Suspect]
     Active Substance: SIMVASTATIN\VALSARTAN
     Indication: HYPERTENSION
     Dosage: UNK OT, QD
     Route: 065

REACTIONS (5)
  - Ventricular arrhythmia [Fatal]
  - Hypotension [Fatal]
  - Acute kidney injury [Fatal]
  - Dementia Alzheimer^s type [Fatal]
  - Epilepsy [Fatal]
